FAERS Safety Report 13803296 (Version 1)
Quarter: 2017Q3

REPORT INFORMATION
  Report Type: Spontaneous
  Country: CA (occurrence: CA)
  Receive Date: 20170728
  Receipt Date: 20170728
  Transmission Date: 20171127
  Serious: Yes (Other)
  Sender: FDA-Public Use
  Company Number: CA-PURDUE-CAN-2017-0007781

PATIENT
  Age: 14 Year
  Sex: Male
  Weight: 82 kg

DRUGS (1)
  1. BIPHENTIN [Suspect]
     Active Substance: METHYLPHENIDATE
     Indication: ATTENTION DEFICIT/HYPERACTIVITY DISORDER
     Dosage: 50 MG, DAILY
     Route: 048

REACTIONS (3)
  - Raynaud^s phenomenon [Unknown]
  - Hypoaesthesia [Unknown]
  - Paraesthesia [Unknown]
